FAERS Safety Report 22317340 (Version 5)
Quarter: 2023Q2

REPORT INFORMATION
  Report Type: Spontaneous
  Country: DE (occurrence: DE)
  Receive Date: 20230515
  Receipt Date: 20230613
  Transmission Date: 20230722
  Serious: Yes (Other)
  Sender: FDA-Public Use
  Company Number: DE-CELLTRION INC.-2023DE009875

PATIENT

DRUGS (5)
  1. INFLIXIMAB [Suspect]
     Active Substance: INFLIXIMAB
     Indication: Colitis ulcerative
     Dosage: 5 MG/KG (A TOTAL OF 3 DOSES WERE GIVEN, EACH 5 MG/KG BODY WEIGHT IV PREPARED IN 250 M NACL 0.9% AT T
     Route: 042
     Dates: start: 20221027
  2. INFLIXIMAB [Suspect]
     Active Substance: INFLIXIMAB
     Dosage: 5 MG/KG (A TOTAL OF 3 DOSES WERE GIVEN, EACH 5 MG/KG BODY WEIGHT IV PREPARED IN 250 M NACL 0.9% AT T
     Route: 042
     Dates: start: 20221111
  3. INFLIXIMAB [Suspect]
     Active Substance: INFLIXIMAB
     Dosage: 5 MG/KG (A TOTAL OF 3 DOSES WERE GIVEN, EACH 5 MG/KG BODY WEIGHT IV PREPARED IN 250 M NACL 0.9% AT T
     Route: 042
     Dates: start: 20221206
  4. SODIUM CHLORIDE [Concomitant]
     Active Substance: SODIUM CHLORIDE
     Dosage: 250 M
  5. MESALAMINE [Concomitant]
     Active Substance: MESALAMINE
     Dosage: 3 G (1-0-0)

REACTIONS (3)
  - Bone marrow failure [Unknown]
  - Pancytopenia [Unknown]
  - Intentional product use issue [Unknown]
